FAERS Safety Report 7843238-3 (Version None)
Quarter: 2011Q4

REPORT INFORMATION
  Report Type: 
  Country: None (occurrence: None)
  Receive Date: 20111025
  Receipt Date: 20111021
  Transmission Date: 20120403
  Serious: Yes (Hospitalization, Other)
  Sender: FDA-Public Use
  Company Number: US-PFIZER INC-2011257625

PATIENT
  Sex: Female

DRUGS (1)
  1. CHANTIX [Suspect]
     Dosage: UNK
     Dates: start: 20070901

REACTIONS (8)
  - PARANOIA [None]
  - IRRITABILITY [None]
  - NIGHTMARE [None]
  - ANXIETY [None]
  - PSYCHOTIC DISORDER [None]
  - TACHYPHRENIA [None]
  - SUICIDE ATTEMPT [None]
  - DEPRESSION [None]
